FAERS Safety Report 9536835 (Version 2)
Quarter: 2013Q4

REPORT INFORMATION
  Report Type: Spontaneous
  Country: FR (occurrence: FR)
  Receive Date: 20130919
  Receipt Date: 20131203
  Transmission Date: 20140711
  Serious: Yes (Hospitalization)
  Sender: FDA-Public Use
  Company Number: FR-PFIZER INC-2013263753

PATIENT
  Age: 56 Year
  Sex: Male

DRUGS (13)
  1. TYGACIL [Suspect]
     Indication: OSTEITIS
     Dosage: UNK
     Route: 041
     Dates: start: 20090501, end: 20090508
  2. TYGACIL [Suspect]
     Dosage: 100 MG/DAILY
     Route: 041
     Dates: start: 20090509, end: 20090512
  3. VANCOMYCINE [Suspect]
     Indication: OSTEITIS
     Dosage: 4 G/DAILY
     Route: 041
     Dates: start: 20090426, end: 20090508
  4. PARACETAMOL [Concomitant]
  5. ESOMEPRAZOLE [Concomitant]
  6. PREGABALIN [Concomitant]
  7. METFORMIN [Concomitant]
  8. ROSUVASTATIN [Concomitant]
  9. HYDROCHLOROTHIAZIDE [Concomitant]
  10. TAZOCILLINE [Concomitant]
     Indication: OSTEITIS
     Dosage: UNK
     Dates: start: 20090423
  11. CIPROFLOXACIN [Concomitant]
     Indication: OSTEITIS
     Dosage: UNK
     Dates: start: 20090423
  12. GENTAMYCIN [Concomitant]
     Indication: OSTEITIS
     Dosage: UNK
     Route: 041
     Dates: start: 20090423
  13. METRONIDAZOLE [Concomitant]
     Indication: OSTEITIS
     Dosage: UNK
     Dates: start: 20090427, end: 20090429

REACTIONS (2)
  - Renal failure [Recovered/Resolved]
  - Off label use [Unknown]
